FAERS Safety Report 19764889 (Version 4)
Quarter: 2021Q4

REPORT INFORMATION
  Report Type: Spontaneous
  Country: IT (occurrence: IT)
  Receive Date: 20210830
  Receipt Date: 20211215
  Transmission Date: 20220303
  Serious: Yes (Life-Threatening, Hospitalization, Disabling, Other)
  Sender: FDA-Public Use
  Company Number: IT-SA-SAC20210318000862

PATIENT
  Age: 8 Year
  Sex: Male
  Weight: 20.4 kg

DRUGS (4)
  1. PREDNISONE [Suspect]
     Active Substance: PREDNISONE
     Indication: Adrenocortical steroid therapy
     Dosage: 40 MILLIGRAM, QD (START DATE: 04-FEB-2021)
     Dates: end: 20210218
  2. PREDNISONE [Suspect]
     Active Substance: PREDNISONE
     Indication: Duchenne muscular dystrophy
     Dosage: 20 MILLIGRAM, QD
     Dates: start: 20210219
  3. ESOMEPRAZOLE [Concomitant]
     Active Substance: ESOMEPRAZOLE
     Indication: Prophylaxis
     Dosage: UNK (START DATE: 03-FEB-2021)
  4. CHOLECALCIFEROL [Concomitant]
     Active Substance: CHOLECALCIFEROL
     Indication: Osteoporosis prophylaxis
     Dosage: UNK
     Dates: start: 20191108

REACTIONS (22)
  - Respiratory distress [Unknown]
  - Pneumonia aspiration [Recovered/Resolved]
  - Condition aggravated [Recovered/Resolved]
  - Dyspnoea [Recovered/Resolved]
  - Rhabdomyolysis [Recovered/Resolved]
  - Loss of personal independence in daily activities [Unknown]
  - Adrenal insufficiency [Unknown]
  - Hypokalaemia [Recovered/Resolved]
  - Blood creatine phosphokinase increased [Unknown]
  - Chromaturia [Recovering/Resolving]
  - Red blood cells urine positive [Unknown]
  - Proteinuria [Unknown]
  - Asthenia [Unknown]
  - Gait disturbance [Unknown]
  - Hypoglycaemia [Unknown]
  - Renal disorder [Unknown]
  - Pyrexia [Unknown]
  - Blood creatinine decreased [Unknown]
  - Fatigue [Unknown]
  - Myoglobinuria [Recovered/Resolved]
  - Oxygen saturation decreased [Unknown]
  - Hypophagia [Unknown]

NARRATIVE: CASE EVENT DATE: 20210101
